FAERS Safety Report 7536540-6 (Version None)
Quarter: 2011Q2

REPORT INFORMATION
  Report Type: 
  Country: None (occurrence: None)
  Receive Date: 20110609
  Receipt Date: 20110606
  Transmission Date: 20111010
  Serious: Yes (Other)
  Sender: FDA-Public Use
  Company Number: JP-SANOFI-AVENTIS-2011SA021973

PATIENT
  Age: 71 Year
  Sex: Male

DRUGS (9)
  1. TS-1 [Concomitant]
     Indication: RECTAL CANCER
  2. BEVACIZUMAB [Suspect]
     Indication: RECTAL CANCER METASTATIC
     Route: 065
     Dates: start: 20080701
  3. FLUOROURACIL [Suspect]
     Indication: RECTAL CANCER METASTATIC
     Dosage: DOSE: INFUSION OF 150 MG/15 MIN ON DAY 1 AND 2 AND 750 MG/DAY ON DAY 1 AND 2 EVERY 2 WEEK
     Route: 065
     Dates: start: 20080701
  4. OXALIPLATIN [Suspect]
     Indication: RECTAL CANCER METASTATIC
     Route: 065
     Dates: start: 20080701
  5. LEUCOVORIN CALCIUM [Suspect]
     Dosage: DOSE 150 MG ON DAY 1 AND 2 EVERY 2 WEEK
     Route: 065
     Dates: start: 20090107, end: 20090107
  6. FLUOROURACIL [Suspect]
     Dosage: DOSE: INFUSION OF 150 MG/15 MIN ON DAY 1 AND 2 AND 750 MG/DAY ON DAY 1 AND 2 EVERY 2 WEEK
     Route: 065
     Dates: start: 20090107, end: 20090107
  7. OXALIPLATIN [Suspect]
     Route: 065
     Dates: start: 20090107, end: 20090107
  8. LEUCOVORIN CALCIUM [Suspect]
     Indication: RECTAL CANCER METASTATIC
     Dosage: DOSE 150 MG ON DAY 1 AND 2 EVERY 2 WEEK
     Route: 065
     Dates: start: 20080701
  9. BEVACIZUMAB [Suspect]
     Route: 065
     Dates: start: 20090107, end: 20090107

REACTIONS (13)
  - NEUROPATHY PERIPHERAL [None]
  - INTERSTITIAL LUNG DISEASE [None]
  - RASH [None]
  - DYSPNOEA [None]
  - EOSINOPHIL COUNT INCREASED [None]
  - NEUTROPENIA [None]
  - PYREXIA [None]
  - HYPOXIA [None]
  - WHITE BLOOD CELL COUNT INCREASED [None]
  - RESPIRATORY FAILURE [None]
  - C-REACTIVE PROTEIN INCREASED [None]
  - PRURITUS [None]
  - DECREASED APPETITE [None]
